FAERS Safety Report 4804065-4 (Version None)
Quarter: 2005Q4

REPORT INFORMATION
  Report Type: 
  Country: None (occurrence: None)
  Receive Date: 20051018
  Receipt Date: 20051018
  Transmission Date: 20060501
  Serious: Yes (Death)
  Sender: FDA-Public Use
  Company Number: None

PATIENT
  Age: 73 Year
  Sex: Male
  Weight: 80.9 kg

DRUGS (4)
  1. OXALIPLATIN [Suspect]
     Indication: OESOPHAGEAL CARCINOMA
     Dosage: 98.5 MG DAY 1 + 8 IV
     Route: 042
     Dates: start: 20050909, end: 20051007
  2. TAXOTERE [Suspect]
     Indication: OESOPHAGEAL CARCINOMA
     Dosage: 68.95MG DAY 1+8 IV
     Route: 042
     Dates: start: 20050909, end: 20051007
  3. CAPECITABINE [Suspect]
     Dosage: 3000 MG DAYS 1 TO 10 PO
     Route: 048
     Dates: start: 20050909, end: 20050918
  4. CAPECITABINE [Suspect]
     Dosage: 3000 MG DAYS 1 TO 10 PO
     Route: 048
     Dates: start: 20050930, end: 20051007

REACTIONS (7)
  - APNOEA [None]
  - BACK PAIN [None]
  - BRONCHITIS [None]
  - CARDIAC ARREST [None]
  - CHRONIC OBSTRUCTIVE PULMONARY DISEASE [None]
  - FATIGUE [None]
  - LOSS OF CONSCIOUSNESS [None]
